FAERS Safety Report 4462570-7 (Version None)
Quarter: 2004Q3

REPORT INFORMATION
  Report Type: 
  Country: None (occurrence: None)
  Receive Date: 20040924
  Receipt Date: 20040914
  Transmission Date: 20050211
  Serious: Yes (Other)
  Sender: FDA-Public Use
  Company Number: DE-2004-031835

PATIENT
  Age: 43 Year
  Sex: Female

DRUGS (1)
  1. MIRENA [Suspect]
     Dosage: 20 ?G/DY, CONT, INTRA-UTERINE
     Route: 015
     Dates: start: 20000701, end: 20040701

REACTIONS (3)
  - AMENORRHOEA [None]
  - CEREBROVASCULAR ACCIDENT [None]
  - MENORRHAGIA [None]
